FAERS Safety Report 24592796 (Version 1)
Quarter: 2024Q4

REPORT INFORMATION
  Report Type: Spontaneous
  Country: US (occurrence: US)
  Receive Date: 20241108
  Receipt Date: 20241108
  Transmission Date: 20250115
  Serious: No
  Sender: Haleon PLC
  Company Number: US-HALEON-2207464

PATIENT

DRUGS (1)
  1. SENSODYNE [Suspect]
     Active Substance: POTASSIUM NITRATE\SODIUM FLUORIDE
     Indication: Product used for unknown indication

REACTIONS (3)
  - Noninfective gingivitis [Not Recovered/Not Resolved]
  - Swelling face [Not Recovered/Not Resolved]
  - Dermatitis contact [Not Recovered/Not Resolved]
